FAERS Safety Report 24613484 (Version 9)
Quarter: 2025Q2

REPORT INFORMATION
  Report Type: Spontaneous
  Country: AT (occurrence: AT)
  Receive Date: 20241113
  Receipt Date: 20250613
  Transmission Date: 20250717
  Serious: Yes (Hospitalization, Other)
  Sender: SANOFI AVENTIS
  Company Number: None

PATIENT
  Age: 66 Year
  Sex: Female
  Weight: 80.4 kg

DRUGS (147)
  1. BLEOMYCIN SULFATE [Suspect]
     Active Substance: BLEOMYCIN SULFATE
     Indication: Breast cancer metastatic
     Dosage: 1 DF, QD
     Route: 042
     Dates: start: 20210105, end: 20210105
  2. BLEOMYCIN SULFATE [Suspect]
     Active Substance: BLEOMYCIN SULFATE
     Indication: HER2 positive breast cancer
     Dosage: 26.85 MG, QD
     Route: 042
  3. BLEOMYCIN SULFATE [Suspect]
     Active Substance: BLEOMYCIN SULFATE
     Dosage: 26.85 MG, QD, DRUG WAS DISCONTINUED AS PLANNED NUMBER OF CYCLES COMPLETED
     Route: 042
  4. BLEOMYCIN SULFATE [Suspect]
     Active Substance: BLEOMYCIN SULFATE
     Dosage: 26.85 MG, QD, START DATE: 05/01/2021; END DATE: 05/01 /2021, START DATE: 19/05/2020; END DATE: 19/05
     Route: 042
     Dates: start: 20200519, end: 20200519
  5. TAXOTERE [Suspect]
     Active Substance: DOCETAXEL
     Indication: Breast cancer metastatic
     Dosage: 190 MG, Q3W
     Route: 042
     Dates: start: 20170224
  6. TAXOTERE [Suspect]
     Active Substance: DOCETAXEL
     Dosage: 570 MG, Q3W
     Route: 042
     Dates: start: 20170224
  7. TAXOTERE [Suspect]
     Active Substance: DOCETAXEL
     Route: 042
     Dates: start: 20170519, end: 20170519
  8. TAXOTERE [Suspect]
     Active Substance: DOCETAXEL
     Route: 042
     Dates: start: 20170410, end: 20170427
  9. TAXOTERE [Suspect]
     Active Substance: DOCETAXEL
     Dosage: 180 MG, Q3W
     Route: 042
     Dates: start: 20170609, end: 20170630
  10. TAXOTERE [Suspect]
     Active Substance: DOCETAXEL
     Dosage: 540 MG, Q3W
     Route: 042
     Dates: start: 20170609, end: 20170630
  11. TAXOTERE [Suspect]
     Active Substance: DOCETAXEL
     Dosage: 134.25 MG, Q3W
     Route: 042
     Dates: start: 20210317, end: 20210428
  12. TAXOTERE [Suspect]
     Active Substance: DOCETAXEL
     Dosage: 402.75 MG, Q3W
     Route: 042
     Dates: start: 20210317, end: 20210428
  13. TAXOTERE [Suspect]
     Active Substance: DOCETAXEL
     Dosage: 40.75 MG, Q3W
     Route: 042
     Dates: start: 20210317, end: 20210428
  14. CAPECITABINE [Suspect]
     Active Substance: CAPECITABINE
     Indication: Breast cancer metastatic
     Dosage: 3500 MG, QD
     Route: 048
     Dates: start: 20191002, end: 20200107
  15. CAPECITABINE [Suspect]
     Active Substance: CAPECITABINE
     Indication: HER2 positive breast cancer
     Dosage: 2000 MG, QD
     Route: 048
     Dates: start: 20191002, end: 20200107
  16. CAPECITABINE [Suspect]
     Active Substance: CAPECITABINE
     Dosage: 3000 MG, QD
     Route: 048
     Dates: start: 20200108, end: 20200421
  17. CAPECITABINE [Suspect]
     Active Substance: CAPECITABINE
     Dosage: 300 MG, QD
     Dates: start: 20200108
  18. CAPECITABINE [Suspect]
     Active Substance: CAPECITABINE
     Dosage: 3000 MG, QD
     Route: 048
  19. DOXORUBICIN HYDROCHLORIDE [Suspect]
     Active Substance: DOXORUBICIN HYDROCHLORIDE
     Indication: Breast cancer metastatic
     Dosage: 104.4 MG, QD
     Route: 042
     Dates: start: 20210608, end: 20210608
  20. DOXORUBICIN HYDROCHLORIDE [Suspect]
     Active Substance: DOXORUBICIN HYDROCHLORIDE
     Indication: HER2 positive breast cancer
     Dosage: 104.4 MG, QD
     Route: 042
     Dates: start: 20210608
  21. TRASTUZUMAB [Suspect]
     Active Substance: TRASTUZUMAB
     Indication: Breast cancer metastatic
     Dosage: 414 MG, Q3W
     Route: 042
     Dates: start: 20170609, end: 20170630
  22. TRASTUZUMAB [Suspect]
     Active Substance: TRASTUZUMAB
     Dosage: 560 MG, Q3W
     Route: 042
     Dates: start: 20201230, end: 20210210
  23. TRASTUZUMAB [Suspect]
     Active Substance: TRASTUZUMAB
     Dosage: 468 MG, QD
     Route: 042
     Dates: start: 20170720, end: 20170720
  24. TRASTUZUMAB [Suspect]
     Active Substance: TRASTUZUMAB
     Dosage: 624 MG, QD
     Route: 041
     Dates: start: 20170224, end: 20170224
  25. TRASTUZUMAB [Suspect]
     Active Substance: TRASTUZUMAB
     Dosage: 540 MG, Q3W
     Route: 042
     Dates: start: 20200422, end: 20200615
  26. TRASTUZUMAB [Suspect]
     Active Substance: TRASTUZUMAB
     Dosage: 462 MG, Q3W
     Route: 042
     Dates: start: 20170224, end: 20170224
  27. TRASTUZUMAB [Suspect]
     Active Substance: TRASTUZUMAB
     Dosage: 432 MG, QD
     Route: 042
     Dates: start: 20170720, end: 20170720
  28. TRASTUZUMAB [Suspect]
     Active Substance: TRASTUZUMAB
     Dosage: 408 MG, Q3W
     Route: 042
     Dates: start: 20170810, end: 20190213
  29. TRASTUZUMAB [Suspect]
     Active Substance: TRASTUZUMAB
     Dosage: 390 MG; Q17D
     Route: 042
     Dates: start: 20170410, end: 20170427
  30. TRASTUZUMAB [Suspect]
     Active Substance: TRASTUZUMAB
     Dosage: 1620.000MG Q3W
     Route: 042
     Dates: start: 20200422, end: 20200615
  31. TRASTUZUMAB [Suspect]
     Active Substance: TRASTUZUMAB
     Dosage: 1680.000MG Q3W
     Route: 042
     Dates: start: 20201230, end: 20210210
  32. TRASTUZUMAB [Suspect]
     Active Substance: TRASTUZUMAB
     Dosage: 560.000MG Q3W
     Route: 042
     Dates: start: 20201230, end: 20210210
  33. TRASTUZUMAB [Suspect]
     Active Substance: TRASTUZUMAB
     Dosage: 1386.000MG Q3W
     Route: 042
     Dates: start: 20170810, end: 20190213
  34. TRASTUZUMAB [Suspect]
     Active Substance: TRASTUZUMAB
     Dosage: 1242.000MG Q3W
     Route: 042
     Dates: start: 20170609, end: 20170630
  35. CARBOXYMETHYLCELLULOSE SODIUM [Suspect]
     Active Substance: CARBOXYMETHYLCELLULOSE SODIUM
     Dates: start: 20210105
  36. TUCATINIB [Suspect]
     Active Substance: TUCATINIB
     Indication: Breast cancer metastatic
     Dosage: 300 MG, BID
     Route: 048
     Dates: start: 20201230, end: 20210210
  37. KADCYLA [Suspect]
     Active Substance: ADO-TRASTUZUMAB EMTANSINE
     Indication: Breast cancer metastatic
     Dosage: 270 MG, Q3W
     Route: 042
     Dates: start: 20190306, end: 20190909
  38. KADCYLA [Suspect]
     Active Substance: ADO-TRASTUZUMAB EMTANSINE
     Indication: Breast cancer metastatic
  39. ENHERTU [Suspect]
     Active Substance: FAM-TRASTUZUMAB DERUXTECAN-NXKI
     Indication: Breast cancer metastatic
     Route: 042
     Dates: start: 20200814, end: 20201015
  40. PERJETA [Suspect]
     Active Substance: PERTUZUMAB
     Indication: Breast cancer metastatic
     Dosage: 840 MG, QD
     Route: 042
     Dates: start: 20210317, end: 20210428
  41. PERJETA [Suspect]
     Active Substance: PERTUZUMAB
     Indication: Breast cancer metastatic
     Dosage: 840 MG, QD
     Route: 042
     Dates: start: 20200422, end: 20200615
  42. PERJETA [Suspect]
     Active Substance: PERTUZUMAB
     Dosage: 840 MG, QD
     Route: 042
     Dates: start: 20170224, end: 20200615
  43. TRASTUZUMAB DERUXTECAN [Suspect]
     Active Substance: TRASTUZUMAB DERUXTECAN
     Indication: HER2 positive breast cancer
     Dosage: 624 MG, QD, MOST RECENT DOSE PRIOR TO THE EVENTS: 10 /AUG/2017
     Route: 042
     Dates: start: 20170224, end: 20170224
  44. TYKERB [Suspect]
     Active Substance: LAPATINIB DITOSYLATE
     Indication: Breast cancer metastatic
     Dosage: 1000 MG, QD
     Route: 048
     Dates: start: 20200108, end: 20200421
  45. TYKERB [Suspect]
     Active Substance: LAPATINIB DITOSYLATE
     Indication: Product used for unknown indication
     Dosage: 1250 MG, QD
     Route: 048
     Dates: start: 20191002, end: 20200107
  46. DENOSUMAB [Suspect]
     Active Substance: DENOSUMAB
     Indication: Breast cancer metastatic
     Dosage: 120 MG, Q4W
     Route: 042
     Dates: start: 20201230, end: 20210210
  47. NAVELBINE [Suspect]
     Active Substance: VINORELBINE TARTRATE
     Indication: Breast cancer metastatic
     Dosage: 45 MG, Q3W
     Route: 042
     Dates: start: 20200422, end: 20200722
  48. NAVELBINE [Suspect]
     Active Substance: VINORELBINE TARTRATE
     Dosage: 45 MG, Q3W
     Dates: start: 20200722
  49. FASLODEX [Suspect]
     Active Substance: FULVESTRANT
     Indication: Breast cancer metastatic
     Dosage: 500 MG, QM; MOST RECENT DOSE PRIOR TO THE EVENT LYMPH NODE METASTATIS AXILLA AND PORT A CATH INFECTI
     Route: 058
     Dates: start: 20171002, end: 20171115
  50. FASLODEX [Suspect]
     Active Substance: FULVESTRANT
     Indication: Breast cancer
     Dosage: 500 MG, QM, START DATE: 16/11/2017; END DATE: 01/10 /2019
     Route: 058
     Dates: start: 20171116, end: 20191001
  51. FASLODEX [Suspect]
     Active Substance: FULVESTRANT
     Route: 058
     Dates: start: 20171002
  52. PERTUZUMAB [Suspect]
     Active Substance: PERTUZUMAB
     Indication: Breast cancer metastatic
     Dosage: 840MG QD (MOST RECENT DOSE PRIOR TO THE EVENT WORSENING OF BRAIN METASTASES: 17MAR2017 MOST RECEN
     Dates: start: 20170224, end: 20170224
  53. LAPATINIB [Suspect]
     Active Substance: LAPATINIB
     Indication: Breast cancer metastatic
     Dosage: 1250 MG, QD
     Route: 048
     Dates: start: 20191002, end: 20200107
  54. TUCATINIB [Suspect]
     Active Substance: TUCATINIB
     Indication: Breast cancer metastatic
     Dosage: 300 MG, Q12H, 300 MG, BID (0.5 DAY UMULATIVE DOSE: 25800 MG
     Route: 048
     Dates: start: 20210210
  55. PEGFILGRASTIM [Suspect]
     Active Substance: PEGFILGRASTIM
     Indication: Product used for unknown indication
     Dates: start: 20210610, end: 20210610
  56. VINORELBINE TARTRATE [Suspect]
     Active Substance: VINORELBINE TARTRATE
     Indication: Breast cancer metastatic
     Dosage: 45 MG, Q3W
     Route: 042
     Dates: start: 20200422, end: 20200722
  57. POLYETHYLENE GLYCOL 3350\POTASSIUM CHLORIDE\SODIUM BICARBONATE\SODIUM [Concomitant]
     Active Substance: POLYETHYLENE GLYCOL 3350\POTASSIUM CHLORIDE\SODIUM BICARBONATE\SODIUM CHLORIDE
     Indication: Product used for unknown indication
     Dates: start: 20210608, end: 20210616
  58. POLYETHYLENE GLYCOL 3350\POTASSIUM CHLORIDE\SODIUM BICARBONATE\SODIUM [Concomitant]
     Active Substance: POLYETHYLENE GLYCOL 3350\POTASSIUM CHLORIDE\SODIUM BICARBONATE\SODIUM CHLORIDE
     Indication: Product used for unknown indication
     Dates: start: 20210608, end: 20210616
  59. POLYETHYLENE GLYCOL 3350\POTASSIUM CHLORIDE\SODIUM BICARBONATE\SODIUM [Concomitant]
     Active Substance: POLYETHYLENE GLYCOL 3350\POTASSIUM CHLORIDE\SODIUM BICARBONATE\SODIUM CHLORIDE
     Route: 048
     Dates: start: 20170709, end: 20170709
  60. MORPHINE SULFATE [Concomitant]
     Active Substance: MORPHINE SULFATE
     Indication: Dyspnoea
     Dates: start: 20210616, end: 20210623
  61. MORPHINE SULFATE [Concomitant]
     Active Substance: MORPHINE SULFATE
     Dates: start: 20210521, end: 20210616
  62. Scottopect [Concomitant]
     Indication: Cough
     Dates: start: 20210611, end: 20210613
  63. ALPRAZOLAM [Concomitant]
     Active Substance: ALPRAZOLAM
     Indication: Restlessness
     Dates: start: 20210613, end: 20210615
  64. VITAMIN C [Concomitant]
     Active Substance: ASCORBIC ACID
     Indication: Gastrointestinal disorder
     Dates: start: 20210611, end: 20210614
  65. Paspertin [Concomitant]
     Indication: Gastrointestinal disorder
     Dates: start: 20210608, end: 20210623
  66. Paspertin [Concomitant]
     Dates: start: 20210608, end: 20210610
  67. Paspertin [Concomitant]
     Route: 065
     Dates: start: 20200506, end: 20201212
  68. Paspertin [Concomitant]
     Dates: start: 20210611, end: 20210623
  69. HYDROMORPHONE HYDROCHLORIDE [Concomitant]
     Active Substance: HYDROMORPHONE HYDROCHLORIDE
     Dates: start: 20210611, end: 20210615
  70. HYDROMORPHONE HYDROCHLORIDE [Concomitant]
     Active Substance: HYDROMORPHONE HYDROCHLORIDE
     Dates: start: 20210611, end: 20210615
  71. Novalgin [Concomitant]
     Dates: start: 20210608, end: 20210618
  72. Novalgin [Concomitant]
     Route: 048
     Dates: start: 20210608, end: 20210612
  73. Neriforte [Concomitant]
     Indication: Skin fissures
     Dates: start: 20200430, end: 20200515
  74. Neriforte [Concomitant]
     Route: 061
     Dates: start: 20200430, end: 20200515
  75. Cal c vita [Concomitant]
     Dates: start: 20170203, end: 20210612
  76. ZOFRAN [Concomitant]
     Active Substance: ONDANSETRON HYDROCHLORIDE
     Indication: Gastrointestinal disorder
     Dates: start: 20210611, end: 20210616
  77. ZOFRAN [Concomitant]
     Active Substance: ONDANSETRON HYDROCHLORIDE
     Dates: start: 20200506
  78. ZOFRAN [Concomitant]
     Active Substance: ONDANSETRON HYDROCHLORIDE
     Dates: start: 20210612, end: 20210616
  79. ZOFRAN [Concomitant]
     Active Substance: ONDANSETRON HYDROCHLORIDE
     Dates: start: 20210611, end: 20210612
  80. Halset [Concomitant]
     Indication: Cough
     Dates: start: 20210611, end: 20210615
  81. EUTHYROX [Concomitant]
     Active Substance: LEVOTHYROXINE SODIUM
     Dosage: 75 UG, QD
     Dates: start: 20170303, end: 20210615
  82. EUTHYROX [Concomitant]
     Active Substance: LEVOTHYROXINE SODIUM
     Dosage: ONGOING = NOT CHECKED
     Route: 048
     Dates: start: 20170303, end: 20210615
  83. ONDANSETRON [Concomitant]
     Active Substance: ONDANSETRON
     Indication: Gastrointestinal disorder
     Dates: start: 20210608, end: 20210610
  84. Temesta [Concomitant]
     Indication: Restlessness
     Dates: start: 20210611, end: 20210621
  85. Temesta [Concomitant]
     Dates: start: 20210618, end: 20210623
  86. FENTANYL [Concomitant]
     Active Substance: FENTANYL
     Route: 062
     Dates: start: 20200515
  87. ACETAMINOPHEN [Concomitant]
     Active Substance: ACETAMINOPHEN
     Indication: Pseudomonal sepsis
     Dates: start: 20210622, end: 20210622
  88. ACETAMINOPHEN [Concomitant]
     Active Substance: ACETAMINOPHEN
     Dates: start: 20200506, end: 20210622
  89. ACETAMINOPHEN [Concomitant]
     Active Substance: ACETAMINOPHEN
     Route: 065
     Dates: end: 20210622
  90. BUTYLSCOPOLAMINE BROMIDE [Concomitant]
     Active Substance: BUTYLSCOPOLAMINE BROMIDE
     Dates: start: 20210618, end: 20210618
  91. OLEOVIT [COLECALCIFEROL-CHOLESTERIN] [Concomitant]
     Route: 048
     Dates: start: 20170329, end: 20210615
  92. PARACODIN [DIHYDROCODEINE] [Concomitant]
     Indication: Cough
     Dates: start: 20210428, end: 20210615
  93. PARACODIN [DIHYDROCODEINE] [Concomitant]
     Dates: start: 20170708, end: 20170709
  94. PANTOPRAZOLE [Concomitant]
     Active Substance: PANTOPRAZOLE
     Indication: Gastrointestinal disorder
     Dates: start: 20210618, end: 20210623
  95. PANTOPRAZOLE [Concomitant]
     Active Substance: PANTOPRAZOLE
     Dates: start: 20210608, end: 20210610
  96. PANTOPRAZOLE [Concomitant]
     Active Substance: PANTOPRAZOLE
     Dates: start: 20210317, end: 20210607
  97. Leukichtan [Concomitant]
     Route: 061
     Dates: start: 20200430, end: 20200515
  98. DRONABINOL [Concomitant]
     Active Substance: DRONABINOL
     Dates: start: 20210608, end: 20210612
  99. EDOXABAN TOSYLATE [Concomitant]
     Active Substance: EDOXABAN TOSYLATE
     Dates: start: 20200613, end: 20210611
  100. XGEVA [Concomitant]
     Active Substance: DENOSUMAB
     Indication: Breast cancer metastatic
     Dosage: 120 MG, QM (120 MG, QM (ONGOING = NOT CHECKED))
     Dates: start: 20170202, end: 20210521
  101. LORAZEPAM [Concomitant]
     Active Substance: LORAZEPAM
  102. PREGABALIN [Concomitant]
     Active Substance: PREGABALIN
  103. ZIEXTENZO [Concomitant]
     Active Substance: PEGFILGRASTIM-BMEZ
  104. ZIEXTENZO [Concomitant]
     Active Substance: PEGFILGRASTIM-BMEZ
     Dates: start: 20210610, end: 20210610
  105. LACTULOSE [Concomitant]
     Active Substance: LACTULOSE
  106. BETAMETHASONE DIPROPIONATE [Concomitant]
     Active Substance: BETAMETHASONE DIPROPIONATE
     Route: 061
     Dates: start: 20191122
  107. Ponveridol [Concomitant]
     Indication: Gastrointestinal disorder
     Dates: start: 20210618, end: 20210623
  108. Ponveridol [Concomitant]
     Indication: Restlessness
     Dates: start: 20210612, end: 20210617
  109. LOVENOX [Concomitant]
     Active Substance: ENOXAPARIN SODIUM
     Dosage: 40 MG, QD
     Dates: start: 20170224, end: 20171130
  110. LEVOFLOXACIN [Concomitant]
     Active Substance: LEVOFLOXACIN
     Dates: start: 20200506, end: 20200512
  111. LEVOFLOXACIN [Concomitant]
     Active Substance: LEVOFLOXACIN
     Dates: start: 20200506, end: 20200512
  112. MORPHINE SULFATE [Concomitant]
     Active Substance: MORPHINE SULFATE
  113. Kalioral [Concomitant]
     Dates: start: 20200427, end: 20200428
  114. DEXAMETHASONE [Concomitant]
     Active Substance: DEXAMETHASONE
     Indication: Brain oedema
     Dates: start: 20170810, end: 20200505
  115. DEXAMETHASONE [Concomitant]
     Active Substance: DEXAMETHASONE
     Dates: start: 20210614, end: 20210623
  116. DEXAMETHASONE [Concomitant]
     Active Substance: DEXAMETHASONE
     Dates: start: 20200609, end: 20200609
  117. SILICON [Concomitant]
     Active Substance: SILICON
     Dates: start: 20200521, end: 20200602
  118. BETAISODONA [Concomitant]
     Active Substance: POVIDONE-IODINE
     Indication: Skin fissures
     Dates: start: 20200430, end: 20200515
  119. CALCIUM CARBONATE\CHOLECALCIFEROL [Concomitant]
     Active Substance: CALCIUM CARBONATE\CHOLECALCIFEROL
     Dates: start: 20170203
  120. Aceclofenac and paracetamol [Concomitant]
     Dates: start: 20210622, end: 20210622
  121. EMEND [Concomitant]
     Active Substance: APREPITANT
     Dates: start: 20200428, end: 20200430
  122. KCL [Concomitant]
     Active Substance: POTASSIUM CHLORIDE
     Dates: start: 20170429
  123. TAZOBACTAM [Concomitant]
     Active Substance: TAZOBACTAM
     Dates: start: 20200423, end: 20200504
  124. TAZOBACTAM [Concomitant]
     Active Substance: TAZOBACTAM
     Route: 042
     Dates: start: 20170708, end: 20170710
  125. CETYLPYRIDINIUM CHLORIDE [Concomitant]
     Active Substance: CETYLPYRIDINIUM CHLORIDE
     Indication: Cough
     Dates: start: 20210611, end: 20210615
  126. MOTRIM [SULFAMETHOXAZOLE;TRIMETHOPRIM] [Concomitant]
     Indication: Product used for unknown indication
     Dates: start: 20190619, end: 20190623
  127. AMOXICILLIN\CLAVULANATE POTASSIUM [Concomitant]
     Active Substance: AMOXICILLIN\CLAVULANATE POTASSIUM
     Indication: Product used for unknown indication
     Dates: start: 20200604, end: 20200605
  128. AMOXICILLIN\CLAVULANATE POTASSIUM [Concomitant]
     Active Substance: AMOXICILLIN\CLAVULANATE POTASSIUM
     Dosage: 1 G, QD
     Dates: start: 20170711, end: 20170713
  129. Xiclav [Concomitant]
     Indication: Product used for unknown indication
     Dates: start: 20181218, end: 20181222
  130. Dexagenta [Concomitant]
     Indication: Brain oedema
     Dates: start: 20171004, end: 20171006
  131. Dexagenta [Concomitant]
     Dates: start: 20171007, end: 20171008
  132. Metogastron [Concomitant]
     Dates: start: 20200506
  133. MORPHINE [Concomitant]
     Active Substance: MORPHINE
     Indication: Dyspnoea
     Dates: start: 20210521, end: 20210616
  134. ACETAMINOPHEN [Concomitant]
     Active Substance: ACETAMINOPHEN
     Indication: Pseudomonal sepsis
     Dates: start: 20200610, end: 20200616
  135. LASIX [Concomitant]
     Active Substance: FUROSEMIDE
     Indication: Product used for unknown indication
     Dates: start: 20240810, end: 20240810
  136. LASIX [Concomitant]
     Active Substance: FUROSEMIDE
     Dates: start: 20170810, end: 20171213
  137. LASIX [Concomitant]
     Active Substance: FUROSEMIDE
     Dates: start: 20170611, end: 20170809
  138. LASIX [Concomitant]
     Active Substance: FUROSEMIDE
     Dates: start: 20170810, end: 20190212
  139. LASIX [Concomitant]
     Active Substance: FUROSEMIDE
     Dates: start: 20170713, end: 20170809
  140. TRAZODONE HYDROCHLORIDE [Concomitant]
     Active Substance: TRAZODONE HYDROCHLORIDE
     Indication: Product used for unknown indication
     Dates: start: 20190731, end: 20190910
  141. Oleovit [Concomitant]
     Dosage: 30 DROP, QW
     Route: 048
     Dates: start: 20170329, end: 20210615
  142. FILGRASTIM [Concomitant]
     Active Substance: FILGRASTIM
     Indication: Product used for unknown indication
     Route: 058
     Dates: start: 20170704, end: 20170708
  143. FILGRASTIM [Concomitant]
     Active Substance: FILGRASTIM
     Dates: start: 20200701
  144. DROPERIDOL [Concomitant]
     Active Substance: DROPERIDOL
     Indication: Gastrointestinal disorder
     Dates: start: 20210612, end: 20210617
  145. ONDANSETRON HYDROCHLORIDE [Concomitant]
     Active Substance: ONDANSETRON HYDROCHLORIDE
     Indication: Gastrointestinal disorder
     Route: 048
     Dates: start: 20210611, end: 20210616
  146. ONDANSETRON HYDROCHLORIDE [Concomitant]
     Active Substance: ONDANSETRON HYDROCHLORIDE
     Route: 048
     Dates: start: 20200506
  147. ONDANSETRON HYDROCHLORIDE [Concomitant]
     Active Substance: ONDANSETRON HYDROCHLORIDE
     Route: 048
     Dates: start: 20170329, end: 20170809

REACTIONS (24)
  - Pseudomonal sepsis [Recovered/Resolved]
  - Sepsis [Recovered/Resolved]
  - Streptococcal sepsis [Recovered/Resolved]
  - Metastases to central nervous system [Not Recovered/Not Resolved]
  - Vascular device infection [Recovered/Resolved]
  - Brain oedema [Not Recovered/Not Resolved]
  - Metastases to lymph nodes [Not Recovered/Not Resolved]
  - Vascular device infection [Recovered/Resolved]
  - Back pain [Recovered/Resolved]
  - Nausea [Recovered/Resolved]
  - Fatigue [Not Recovered/Not Resolved]
  - C-reactive protein increased [Not Recovered/Not Resolved]
  - Vomiting [Recovered/Resolved]
  - Candida infection [Recovered/Resolved]
  - Skin fissures [Recovered/Resolved]
  - Varicose vein [Not Recovered/Not Resolved]
  - Nail bed inflammation [Not Recovered/Not Resolved]
  - Eczema [Not Recovered/Not Resolved]
  - Paronychia [Recovered/Resolved]
  - Pleural effusion [Recovered/Resolved]
  - Restlessness [Unknown]
  - Nasal mucosal disorder [Recovered/Resolved]
  - Off label use [Unknown]
  - Varicose vein [Not Recovered/Not Resolved]

NARRATIVE: CASE EVENT DATE: 20170921
